FAERS Safety Report 24381916 (Version 1)
Quarter: 2024Q4

REPORT INFORMATION
  Report Type: Spontaneous
  Country: US (occurrence: US)
  Receive Date: 20241001
  Receipt Date: 20241001
  Transmission Date: 20250114
  Serious: Yes (Other)
  Sender: EMCURE
  Company Number: US-AVET LIFESCIENCES LTD-2024-AVET-000337

PATIENT
  Age: 13 Year
  Sex: Male

DRUGS (1)
  1. PROCHLORPERAZINE EDISYLATE [Suspect]
     Active Substance: PROCHLORPERAZINE EDISYLATE
     Indication: Procedural nausea
     Dosage: MOST RECENT ADMINISTRATION AN HOUR PRIOR TO SYMPTOM ONSET
     Route: 042

REACTIONS (1)
  - Oculogyric crisis [Recovered/Resolved]
